FAERS Safety Report 4490794-1 (Version None)
Quarter: 2004Q4

REPORT INFORMATION
  Report Type: 
  Country: None (occurrence: None)
  Receive Date: 20041027
  Receipt Date: 20041014
  Transmission Date: 20050328
  Serious: No
  Sender: FDA-Public Use
  Company Number: 2004UW21574

PATIENT
  Age: 40 Year
  Sex: Female

DRUGS (3)
  1. SEROQUEL [Suspect]
     Dosage: 1300 MG PO
     Route: 048
  2. DEPAKOTE [Concomitant]
  3. CLINDAMYCIN HCL [Concomitant]

REACTIONS (4)
  - NEUTROPHIL COUNT DECREASED [None]
  - SINUSITIS [None]
  - SKIN INFECTION [None]
  - URINARY TRACT INFECTION [None]
